FAERS Safety Report 24108999 (Version 7)
Quarter: 2025Q3

REPORT INFORMATION
  Report Type: Report from Study
  Country: US (occurrence: US)
  Receive Date: 20240718
  Receipt Date: 20250723
  Transmission Date: 20251021
  Serious: Yes (Other)
  Sender: TAKEDA
  Company Number: US-TAKEDA-2024TUS061377

PATIENT
  Age: 34 Year
  Sex: Female

DRUGS (3)
  1. VEDOLIZUMAB [Suspect]
     Active Substance: VEDOLIZUMAB
     Indication: Colitis ulcerative
  2. VEDOLIZUMAB [Suspect]
     Active Substance: VEDOLIZUMAB
     Indication: Colitis ulcerative
     Dosage: 108 MILLIGRAM, Q2WEEKS
     Dates: start: 20240613
  3. VEDOLIZUMAB [Suspect]
     Active Substance: VEDOLIZUMAB

REACTIONS (10)
  - Pneumonia [Unknown]
  - Diarrhoea [Not Recovered/Not Resolved]
  - Frequent bowel movements [Not Recovered/Not Resolved]
  - Injection site discomfort [Recovered/Resolved]
  - Illness [Unknown]
  - Product dose omission issue [Unknown]
  - Muscle spasms [Unknown]
  - Injection site reaction [Recovered/Resolved]
  - Fatigue [Recovered/Resolved]
  - Cryptosporidiosis infection [Recovered/Resolved]

NARRATIVE: CASE EVENT DATE: 20240712
